FAERS Safety Report 5631579-X (Version None)
Quarter: 2008Q1

REPORT INFORMATION
  Report Type: 
  Country: None (occurrence: None)
  Receive Date: 20080215
  Receipt Date: 20080201
  Transmission Date: 20080703
  Serious: Yes (Hospitalization, Other)
  Sender: FDA-Public Use
  Company Number: FABR-11943

PATIENT
  Age: 51 Year
  Sex: Male
  Weight: 85 kg

DRUGS (1)
  1. FABRAZYME [Suspect]
     Indication: FABRY'S DISEASE
     Dosage: 85 MG, Q2W, INTRAVENOUS
     Route: 042
     Dates: start: 20061226

REACTIONS (7)
  - DIZZINESS [None]
  - DYSPNOEA EXERTIONAL [None]
  - ECHOCARDIOGRAM ABNORMAL [None]
  - EJECTION FRACTION DECREASED [None]
  - HEART RATE IRREGULAR [None]
  - HYPOAESTHESIA [None]
  - HYPOAESTHESIA ORAL [None]
